FAERS Safety Report 9424262 (Version 2)
Quarter: 2013Q4

REPORT INFORMATION
  Report Type: Spontaneous
  Country: GB (occurrence: GB)
  Receive Date: 20130729
  Receipt Date: 20131101
  Transmission Date: 20140711
  Serious: Yes (Life-Threatening, Hospitalization)
  Sender: FDA-Public Use
  Company Number: GB-ACCORD-018668

PATIENT
  Age: 39 Year
  Sex: Female
  Weight: 69.85 kg

DRUGS (5)
  1. ARIPIPRAZOLE [Suspect]
     Indication: OBSESSIVE-COMPULSIVE DISORDER
     Dosage: 5-10MG DAILY
     Route: 048
     Dates: start: 200805, end: 201306
  2. LITHIUM CARBONATE [Concomitant]
  3. QUETIAPINE FUMARATE [Suspect]
     Indication: OBSESSIVE-COMPULSIVE DISORDER
     Route: 048
     Dates: start: 201106, end: 201304
  4. SERTRALINE [Concomitant]
  5. RISPERIDONE [Concomitant]

REACTIONS (3)
  - Pulmonary embolism [Recovered/Resolved]
  - Dyspnoea [Recovered/Resolved]
  - Off label use [Unknown]
